FAERS Safety Report 9796515 (Version 1)
Quarter: 2014Q1

REPORT INFORMATION
  Report Type: Spontaneous
  Country: US (occurrence: US)
  Receive Date: 20140103
  Receipt Date: 20140103
  Transmission Date: 20141002
  Serious: Yes (Death, Other)
  Sender: FDA-Public Use
  Company Number: US-UCBSA-107624

PATIENT
  Age: 38 Year
  Sex: Female

DRUGS (2)
  1. ALPRAZOLAM [Suspect]
     Dosage: INGESTION+UNKNOWN
  2. MORPHINE [Suspect]
     Dosage: INGESTION+UNKNOWN

REACTIONS (1)
  - Drug abuse [Fatal]
